FAERS Safety Report 21438785 (Version 1)
Quarter: 2022Q4

REPORT INFORMATION
  Report Type: Spontaneous
  Country: US (occurrence: None)
  Receive Date: 20221007
  Receipt Date: 20221007
  Transmission Date: 20230113
  Serious: Yes (Hospitalization)
  Sender: FDA-Public Use
  Company Number: None

PATIENT
  Age: 41 Year
  Sex: Female

DRUGS (5)
  1. HUMIRA [Suspect]
     Active Substance: ADALIMUMAB
     Dosage: 40 MG/0.4ML SUBCUTANEOUS??INJECT 0.4 ML (40 MG TOTAL) UNDER THE SKIN EVERY 14 (FOURTEEN) DAYS? ?
     Route: 058
     Dates: start: 20220831
  2. FAMOTIDINE [Concomitant]
  3. FOLIC ACID [Concomitant]
  4. SINGULAIR [Concomitant]
  5. ZYRTEC [Concomitant]

REACTIONS (7)
  - Infection [None]
  - Arthralgia [None]
  - Rash [None]
  - Skin irritation [None]
  - Therapy interrupted [None]
  - Gastric disorder [None]
  - Hernia [None]

NARRATIVE: CASE EVENT DATE: 20221005
